FAERS Safety Report 9937233 (Version 1)
Quarter: 2014Q1

REPORT INFORMATION
  Report Type: Spontaneous
  Country: GB (occurrence: GB)
  Receive Date: 20140301
  Receipt Date: 20140301
  Transmission Date: 20141002
  Serious: Yes (Other)
  Sender: FDA-Public Use
  Company Number: PHHY2014GB021661

PATIENT
  Age: 78 Year
  Sex: Male
  Weight: 69.85 kg

DRUGS (4)
  1. LEVOFLOXACIN [Suspect]
     Indication: PNEUMONIA
     Route: 048
     Dates: start: 20140123, end: 20140129
  2. LANSOPRAZOLE [Concomitant]
  3. PREDNISOLONE [Concomitant]
  4. TAMSULOSIN [Concomitant]

REACTIONS (4)
  - Blister [Recovered/Resolved]
  - Renal pain [Recovered/Resolved]
  - Pyrexia [Recovered/Resolved]
  - Tachycardia [Recovered/Resolved]
